FAERS Safety Report 4673539-1 (Version None)
Quarter: 2005Q2

REPORT INFORMATION
  Report Type: 
  Country: None (occurrence: None)
  Receive Date: 20050525
  Receipt Date: 20050411
  Transmission Date: 20051028
  Serious: Yes (Other)
  Sender: FDA-Public Use
  Company Number: PHBS2005BR05187

PATIENT
  Age: 62 Year
  Sex: Female
  Weight: 70 kg

DRUGS (4)
  1. FASLODEX [Concomitant]
     Dates: end: 20041201
  2. GEMCITABINE [Concomitant]
     Dates: end: 20050429
  3. CHEMOTHERAPEUTICS,OTHER [Concomitant]
  4. ZOMETA [Suspect]
     Indication: METASTASES TO BONE
     Dosage: 4 MG EVERY 28 DAYS
     Route: 042
     Dates: start: 20020710

REACTIONS (10)
  - ABDOMINAL DISTENSION [None]
  - ANAEMIA [None]
  - ASCITES [None]
  - ASEPTIC NECROSIS BONE [None]
  - ASTHENIA [None]
  - GENERAL PHYSICAL CONDITION ABNORMAL [None]
  - INFLAMMATION [None]
  - LEUKOPENIA [None]
  - MALIGNANT NEOPLASM PROGRESSION [None]
  - MOVEMENT DISORDER [None]
